FAERS Safety Report 7711009-4 (Version None)
Quarter: 2011Q3

REPORT INFORMATION
  Report Type: 
  Country: None (occurrence: None)
  Receive Date: 20110825
  Receipt Date: 20110809
  Transmission Date: 20111222
  Serious: Yes (Other)
  Sender: FDA-Public Use
  Company Number: DE-GENENTECH-323239

PATIENT
  Age: 74 Year
  Sex: Male

DRUGS (5)
  1. MABTHERA [Suspect]
     Dosage: UNK
     Route: 042
  2. MABTHERA [Suspect]
     Indication: B-CELL LYMPHOMA
     Dosage: UNK
     Route: 042
  3. BENDAMUSTINE [Suspect]
     Indication: B-CELL LYMPHOMA
     Dosage: UNK
     Route: 042
  4. BENDAMUSTINE [Suspect]
     Dosage: UNK
     Route: 042
  5. CORTISONE ACETATE [Concomitant]
     Indication: PRODUCT USED FOR UNKNOWN INDICATION
     Dosage: UNK

REACTIONS (4)
  - BLOOD GLUCOSE DECREASED [None]
  - INFUSION RELATED REACTION [None]
  - INFECTION [None]
  - BLOOD PRESSURE DECREASED [None]
